FAERS Safety Report 7653509-1 (Version None)
Quarter: 2011Q3

REPORT INFORMATION
  Report Type: 
  Country: None (occurrence: None)
  Receive Date: 20110803
  Receipt Date: 20110719
  Transmission Date: 20111222
  Serious: Yes (Hospitalization, Other)
  Sender: FDA-Public Use
  Company Number: US-BAYER-201041920NA

PATIENT
  Age: 47 Year
  Sex: Female
  Weight: 73.832 kg

DRUGS (8)
  1. TOPAMAX [Concomitant]
     Indication: MIGRAINE
     Dosage: 100 MG, PRN
     Route: 048
     Dates: start: 20070312, end: 20070502
  2. IMITREX [Concomitant]
     Indication: MIGRAINE
     Dosage: 150 MG, UNK
     Dates: start: 20070412, end: 20070502
  3. HYDROCODONE BITARTRATE AND ACETAMINOPHEN [Concomitant]
     Indication: PAIN
     Dosage: UNK
     Route: 048
     Dates: start: 20070412, end: 20070502
  4. DARVOCET-N 50 [Concomitant]
     Indication: PAIN
     Dosage: UNK
     Route: 048
     Dates: start: 20060101, end: 20080101
  5. DARVOCET-N 50 [Concomitant]
     Indication: HEADACHE
  6. YAZ [Suspect]
     Indication: CONTRACEPTION
     Dosage: UNK
     Route: 048
     Dates: start: 20061213, end: 20070513
  7. YAZ [Suspect]
     Indication: MENSTRUAL DISORDER
  8. EFFEXOR XR [Concomitant]
     Indication: DEPRESSION
     Dosage: 150 MG, QD
     Route: 048
     Dates: start: 20050101, end: 20070101

REACTIONS (3)
  - PAIN [None]
  - PULMONARY EMBOLISM [None]
  - CHEST PAIN [None]
